FAERS Safety Report 7298747-5 (Version None)
Quarter: 2011Q1

REPORT INFORMATION
  Report Type: 
  Country: None (occurrence: None)
  Receive Date: 20110217
  Receipt Date: 20110211
  Transmission Date: 20110831
  Serious: Yes (Hospitalization, Other)
  Sender: FDA-Public Use
  Company Number: AT-JNJFOC-20110202127

PATIENT
  Sex: Female
  Weight: 98 kg

DRUGS (18)
  1. CAELYX [Suspect]
     Indication: OVARIAN CANCER
     Dosage: CYCLE 3
     Route: 042
  2. SIMVASTATIN [Concomitant]
     Route: 065
  3. METOGASTRON [Concomitant]
     Route: 065
  4. FRAXIPARIN [Concomitant]
     Route: 065
  5. YONDELIS [Suspect]
     Indication: OVARIAN CANCER
     Dosage: CYCLE 3
     Route: 042
  6. EUTHYROX [Concomitant]
     Route: 065
  7. MEXALEN [Concomitant]
     Route: 065
  8. MOTILIUM [Concomitant]
     Route: 065
  9. FORTECORTIN TABLETS [Concomitant]
     Route: 065
  10. YONDELIS [Suspect]
     Dosage: CYCLES 1-2
     Route: 042
  11. FEMARA [Concomitant]
     Indication: BREAST CANCER
     Route: 065
  12. NAVOBAN [Concomitant]
     Indication: ANTIEMETIC SUPPORTIVE CARE
     Route: 065
  13. AMLODIPINE [Concomitant]
     Indication: HYPERTENSION
     Route: 065
  14. PANTOLOC [Concomitant]
     Route: 065
  15. DICLOBENE [Concomitant]
     Route: 065
  16. MAXI-KALZ [Concomitant]
     Route: 065
  17. ZOLPIDEM TARTRATE [Concomitant]
  18. FEMARA [Concomitant]
     Route: 065

REACTIONS (8)
  - TRANSAMINASES INCREASED [None]
  - PYREXIA [None]
  - INFLUENZA LIKE ILLNESS [None]
  - NAUSEA [None]
  - FATIGUE [None]
  - BLOOD CREATINE PHOSPHOKINASE INCREASED [None]
  - PANCYTOPENIA [None]
  - VOMITING [None]
